FAERS Safety Report 26088104 (Version 1)
Quarter: 2025Q4

REPORT INFORMATION
  Report Type: Spontaneous
  Country: US (occurrence: US)
  Receive Date: 20251125
  Receipt Date: 20251125
  Transmission Date: 20260118
  Serious: No
  Sender: MERZ
  Company Number: US-MRZWEB-2025110000016

PATIENT

DRUGS (1)
  1. XEOMIN [Suspect]
     Active Substance: INCOBOTULINUMTOXINA
     Indication: Product used for unknown indication

REACTIONS (7)
  - Oropharyngeal pain [Unknown]
  - Back pain [Unknown]
  - Chills [Unknown]
  - Headache [Recovered/Resolved]
  - Nausea [Recovered/Resolved]
  - Hypersensitivity [Unknown]
  - Dysphagia [Unknown]
